FAERS Safety Report 8203729-2 (Version None)
Quarter: 2012Q1

REPORT INFORMATION
  Report Type: 
  Country: None (occurrence: None)
  Receive Date: 20120308
  Receipt Date: 20120221
  Transmission Date: 20120608
  Serious: Yes (Other)
  Sender: FDA-Public Use
  Company Number: TCI2011A04169

PATIENT
  Age: 80 Year
  Sex: Male

DRUGS (8)
  1. VOLTAREN [Concomitant]
  2. OLMESARTAN MEDOXOMIL [Concomitant]
  3. LENDORM [Concomitant]
  4. AMARYL [Concomitant]
  5. PURSENID (SENNOSIDE A+B CALCIUM) [Concomitant]
  6. ACTOS [Suspect]
     Indication: DIABETES MELLITUS
     Dosage: 15 MG (15 MG, 1 D)   30 MG (30 MG, 1 D)
     Route: 048
     Dates: start: 20071011, end: 20080107
  7. ACTOS [Suspect]
     Indication: DIABETES MELLITUS
     Dosage: 15 MG (15 MG, 1 D)   30 MG (30 MG, 1 D)
     Route: 048
     Dates: start: 20080108, end: 20110206
  8. TSUMURA BAKUMONDOUTO (HERBAL EXTRACT NOS) [Concomitant]

REACTIONS (4)
  - COLONIC POLYP [None]
  - BLADDER TRANSITIONAL CELL CARCINOMA [None]
  - OCCULT BLOOD POSITIVE [None]
  - GOITRE [None]
